FAERS Safety Report 5868877-0 (Version None)
Quarter: 2008Q3

REPORT INFORMATION
  Report Type: 
  Country: None (occurrence: None)
  Receive Date: 20080902
  Receipt Date: 20080902
  Transmission Date: 20090109
  Serious: No
  Sender: FDA-Public Use
  Company Number: None

PATIENT
  Age: 30 Year
  Sex: Female
  Weight: 54.4316 kg

DRUGS (1)
  1. SEROQUEL [Suspect]
     Indication: SLEEP DISORDER
     Dosage: 4-6 PILLS A DAY MOSTLY SAMPLES 2 PO
     Route: 048
     Dates: start: 20070801, end: 20080901

REACTIONS (5)
  - DIZZINESS [None]
  - DRUG DEPENDENCE [None]
  - FATIGUE [None]
  - INCORRECT DOSE ADMINISTERED [None]
  - INITIAL INSOMNIA [None]
